FAERS Safety Report 6824774-5 (Version None)
Quarter: 2010Q3

REPORT INFORMATION
  Report Type: 
  Country: None (occurrence: None)
  Receive Date: 20100708
  Receipt Date: 20061115
  Transmission Date: 20110219
  Serious: No
  Sender: FDA-Public Use
  Company Number: US-PFIZER INC-2006142969

PATIENT
  Sex: Male
  Weight: 79.38 kg

DRUGS (3)
  1. CHANTIX [Suspect]
     Indication: EX-TOBACCO USER
     Dates: start: 20061113, end: 20061113
  2. VYTORIN [Concomitant]
     Indication: BLOOD CHOLESTEROL
  3. TOPROL-XL [Concomitant]
     Indication: HYPERTENSION

REACTIONS (4)
  - DIZZINESS [None]
  - DRUG INTOLERANCE [None]
  - MALAISE [None]
  - NAUSEA [None]
